FAERS Safety Report 4272574-5 (Version None)
Quarter: 2004Q1

REPORT INFORMATION
  Report Type: 
  Country: None (occurrence: None)
  Receive Date: 20040114
  Receipt Date: 20040114
  Transmission Date: 20041129
  Serious: No
  Sender: FDA-Public Use
  Company Number: None

PATIENT
  Age: 65 Year
  Sex: Female
  Weight: 72.5755 kg

DRUGS (2)
  1. CRESTOR [Suspect]
     Dosage: 10 MG EVERY NITE ORAL
     Route: 048
     Dates: start: 20031201, end: 20040113
  2. CRESTOR [Suspect]
     Dosage: 10 MG EVERY NITE ORAL
     Route: 048
     Dates: start: 20031208, end: 20040113

REACTIONS (3)
  - JOINT SWELLING [None]
  - MYALGIA [None]
  - OEDEMA PERIPHERAL [None]
